FAERS Safety Report 20211455 (Version 1)
Quarter: 2021Q4

REPORT INFORMATION
  Report Type: Spontaneous
  Country: US (occurrence: US)
  Receive Date: 20211221
  Receipt Date: 20211221
  Transmission Date: 20220303
  Serious: Yes (Other)
  Sender: FDA-Public Use
  Company Number: US-BAYER-2021A265754

PATIENT
  Age: 83 Year
  Sex: Male

DRUGS (11)
  1. DAROLUTAMIDE [Suspect]
     Active Substance: DAROLUTAMIDE
     Dosage: 300 MG, QD
     Route: 048
  2. DAROLUTAMIDE [Suspect]
     Active Substance: DAROLUTAMIDE
     Dosage: 4 DOSAGE FORM (PILLS)
     Route: 048
  3. ORGOVYX [Concomitant]
     Active Substance: RELUGOLIX
     Indication: Prostate cancer
     Dosage: 120 MG, QD
     Dates: start: 20210827
  4. NITROSTAT [Concomitant]
     Active Substance: NITROGLYCERIN
  5. ZINC [Concomitant]
     Active Substance: ZINC
  6. XALATAN [Concomitant]
     Active Substance: LATANOPROST
  7. VITAMIN E [Concomitant]
     Active Substance: .ALPHA.-TOCOPHEROL
  8. VITAMIN A + D [COLECALCIFEROL;RETINOL] [Concomitant]
  9. TIMOLOL MALEATE [Concomitant]
     Active Substance: TIMOLOL MALEATE
  10. SIMVASTATIN [Concomitant]
     Active Substance: SIMVASTATIN
  11. COVID-19 VACCINE NOS [Concomitant]
     Active Substance: COVID-19 VACCINE NOS

REACTIONS (5)
  - Cerebrovascular accident [Recovering/Resolving]
  - Blindness [Recovered/Resolved]
  - Hemiparesis [Unknown]
  - Muscle tightness [Recovering/Resolving]
  - Off label use [None]

NARRATIVE: CASE EVENT DATE: 20211201
